FAERS Safety Report 7608790-1 (Version None)
Quarter: 2011Q3

REPORT INFORMATION
  Report Type: 
  Country: None (occurrence: None)
  Receive Date: 20110713
  Receipt Date: 20110713
  Transmission Date: 20111222
  Serious: No
  Sender: FDA-Public Use
  Company Number: None

PATIENT
  Age: 71 Year
  Sex: Female
  Weight: 64.8644 kg

DRUGS (1)
  1. LIVALO [Suspect]
     Indication: BLOOD CHOLESTEROL INCREASED
     Dosage: 1 PILL 3 DAYS A WK ONLY TOOK 3 TIMES

REACTIONS (4)
  - NAUSEA [None]
  - SYNCOPE [None]
  - FAECES DISCOLOURED [None]
  - ABDOMINAL PAIN UPPER [None]
